FAERS Safety Report 6695721-4 (Version None)
Quarter: 2010Q2

REPORT INFORMATION
  Report Type: 
  Country: None (occurrence: None)
  Receive Date: 20100423
  Receipt Date: 20100423
  Transmission Date: 20101027
  Serious: Yes (Disabling)
  Sender: FDA-Public Use
  Company Number: None

PATIENT
  Age: 58 Year
  Sex: Female
  Weight: 61.6892 kg

DRUGS (1)
  1. TIZANIDINE HCL [Suspect]
     Indication: PAIN IN EXTREMITY
     Dosage: 4 MG 2 AT BEDTIME PO; 9 NIGHTS
     Route: 048
     Dates: start: 20100331, end: 20100408

REACTIONS (4)
  - CHILLS [None]
  - FEAR [None]
  - HALLUCINATION [None]
  - SCREAMING [None]
